FAERS Safety Report 6271947-9 (Version None)
Quarter: 2009Q3

REPORT INFORMATION
  Report Type: 
  Country: None (occurrence: None)
  Receive Date: 20090713
  Receipt Date: 20090327
  Transmission Date: 20100115
  Serious: Yes (Hospitalization)
  Sender: FDA-Public Use
  Company Number: 2009BM000075

PATIENT
  Age: 16 Year
  Sex: Female
  Weight: 55.8 kg

DRUGS (3)
  1. KUVAN [Suspect]
     Indication: PHENYLKETONURIA
     Dosage: 20 MG/KG;QD;PO ; 20 MG/KG;QD;PO
     Route: 048
     Dates: start: 20090205, end: 20090316
  2. KUVAN [Suspect]
     Indication: PHENYLKETONURIA
     Dosage: 20 MG/KG;QD;PO ; 20 MG/KG;QD;PO
     Route: 048
     Dates: start: 20090319
  3. NEXIUM [Concomitant]

REACTIONS (1)
  - VOMITING [None]
